FAERS Safety Report 4363109-7 (Version None)
Quarter: 2004Q2

REPORT INFORMATION
  Report Type: 
  Country: None (occurrence: None)
  Receive Date: 20040517
  Receipt Date: 20040329
  Transmission Date: 20050107
  Serious: No
  Sender: FDA-Public Use
  Company Number: S04-USA-01761-01

PATIENT
  Age: 82 Year
  Sex: Male

DRUGS (8)
  1. NAMENDA [Suspect]
     Indication: VASCULAR DEMENTIA
     Dosage: 5 MG QD PO
     Route: 048
     Dates: start: 20040318, end: 20040324
  2. NAMENDA [Suspect]
     Indication: VASCULAR DEMENTIA
     Dosage: 10 MG QD PO
     Route: 048
     Dates: start: 20040325
  3. ARICEPT [Concomitant]
  4. ATENOLOL [Concomitant]
  5. NEXIUM [Concomitant]
  6. NORVASC [Concomitant]
  7. LIPITOR [Concomitant]
  8. LASIX [Concomitant]

REACTIONS (2)
  - DIZZINESS [None]
  - SINUS CONGESTION [None]
